FAERS Safety Report 7327752-5 (Version None)
Quarter: 2011Q1

REPORT INFORMATION
  Report Type: 
  Country: None (occurrence: None)
  Receive Date: 20110303
  Receipt Date: 20101111
  Transmission Date: 20110831
  Serious: Yes (Other)
  Sender: FDA-Public Use
  Company Number: DE-JNJFOC-20101208794

PATIENT
  Sex: Male
  Weight: 95 kg

DRUGS (6)
  1. KATADOLON [Concomitant]
     Route: 065
  2. PALEXIA RETARD [Suspect]
     Indication: SURGERY
     Dosage: 50 MG EVERY 12 HOURS
     Route: 048
  3. PALEXIA RETARD [Suspect]
     Route: 048
  4. TARGIN [Concomitant]
     Route: 065
  5. TARGIN [Concomitant]
     Route: 065
  6. NOVALGIN [Concomitant]
     Route: 065

REACTIONS (3)
  - CHEST DISCOMFORT [None]
  - DYSPNOEA [None]
  - ANGINA PECTORIS [None]
